FAERS Safety Report 4662542-3 (Version None)
Quarter: 2005Q2

REPORT INFORMATION
  Report Type: 
  Country: None (occurrence: None)
  Receive Date: 20050512
  Receipt Date: 20050428
  Transmission Date: 20051028
  Serious: Yes (Hospitalization)
  Sender: FDA-Public Use
  Company Number: 207290

PATIENT
  Age: 47 Year
  Sex: Male
  Weight: 55 kg

DRUGS (13)
  1. AVONEX [Suspect]
     Indication: MULTIPLE SCLEROSIS
     Dosage: 30 UG; QW; IM
     Route: 030
     Dates: start: 19971101, end: 19990101
  2. APOZEPAM (DIAZEPAM) [Concomitant]
  3. MARINOL [Concomitant]
  4. TRILEPTAL (OXCARBAZEPIN) [Concomitant]
  5. BACLOFEN [Concomitant]
  6. AMITRIPTYLINE HCL [Concomitant]
  7. DITROPAN [Concomitant]
  8. DRONABINOL [Concomitant]
  9. GABAPENTIN [Concomitant]
  10. DOLOL [Concomitant]
  11. MEDROL [Concomitant]
  12. ZOLOFT [Concomitant]
  13. MINIRIN [Concomitant]

REACTIONS (1)
  - SQUAMOUS CELL CARCINOMA [None]
